FAERS Safety Report 10405089 (Version 2)
Quarter: 2014Q3

REPORT INFORMATION
  Report Type: Report from Study
  Country: IN (occurrence: IN)
  Receive Date: 20140825
  Receipt Date: 20140929
  Transmission Date: 20150326
  Serious: Yes (Death)
  Sender: FDA-Public Use
  Company Number: IN-ROCHE-1451700

PATIENT
  Age: 58 Year
  Sex: Female

DRUGS (13)
  1. WYSOLONE [Concomitant]
     Indication: HEPATITIS C VIRUS TEST POSITIVE
     Route: 048
     Dates: start: 20140808
  2. EXXURA [Suspect]
     Active Substance: PEGINTERFERON ALFA-2A
     Indication: RENAL FAILURE CHRONIC
  3. TRYPTOMER [Concomitant]
     Indication: HEPATITIS C VIRUS TEST POSITIVE
     Route: 048
     Dates: start: 20140808
  4. TRYPTOMER [Concomitant]
     Indication: RENAL FAILURE CHRONIC
  5. ASPIRIN. [Concomitant]
     Active Substance: ASPIRIN
     Indication: HEPATITIS C VIRUS TEST POSITIVE
     Route: 048
     Dates: start: 20140808
  6. FORCAN [Concomitant]
     Dosage: OD FOR 3 DAYS.
     Route: 065
     Dates: start: 20140808
  7. ULTRACET [Concomitant]
     Active Substance: ACETAMINOPHEN\TRAMADOL HYDROCHLORIDE
     Indication: PAIN
     Dosage: BD
     Route: 065
  8. HUMAN ACTRAPID [Concomitant]
     Active Substance: INSULIN HUMAN
     Dosage: 12 U BBF, 9U BFL AD 9U BFD
     Route: 065
     Dates: start: 20140808
  9. SHELCAL [Concomitant]
     Dosage: OD
     Route: 065
     Dates: start: 20140808
  10. EXXURA [Suspect]
     Active Substance: PEGINTERFERON ALFA-2A
     Indication: HEPATITIS C VIRUS TEST POSITIVE
     Route: 042
     Dates: start: 20140814, end: 20140815
  11. ASPIRIN. [Concomitant]
     Active Substance: ASPIRIN
     Indication: RENAL FAILURE CHRONIC
  12. WYSOLONE [Concomitant]
     Indication: RENAL FAILURE CHRONIC
  13. LYRICA [Concomitant]
     Active Substance: PREGABALIN
     Route: 065
     Dates: start: 20140808

REACTIONS (2)
  - Hepatitis C [Fatal]
  - Nephropathy [Fatal]

NARRATIVE: CASE EVENT DATE: 20140816
